FAERS Safety Report 8525931-2 (Version None)
Quarter: 2012Q3

REPORT INFORMATION
  Report Type: 
  Country: None (occurrence: None)
  Receive Date: 20120720
  Receipt Date: 20120712
  Transmission Date: 20120928
  Serious: No
  Sender: FDA-Public Use
  Company Number: US-PFIZER INC-2012164309

PATIENT
  Sex: Female

DRUGS (3)
  1. CALAN SR [Suspect]
     Indication: MIGRAINE
  2. CALAN SR [Suspect]
     Indication: BLOOD PRESSURE ABNORMAL
     Dosage: 240 MG, ONCE DAILY
     Route: 048
  3. CALAN SR [Suspect]
     Indication: CEREBROVASCULAR ACCIDENT

REACTIONS (2)
  - HYPERTENSION [None]
  - MIGRAINE [None]
